FAERS Safety Report 9513027 (Version 2)
Quarter: 2013Q3

REPORT INFORMATION
  Report Type: Spontaneous
  Country: US (occurrence: US)
  Receive Date: 20130910
  Receipt Date: 20130927
  Transmission Date: 20140515
  Serious: Yes (Hospitalization)
  Sender: FDA-Public Use
  Company Number: US-PFIZER INC-2013255556

PATIENT
  Age: 75 Year
  Sex: Male

DRUGS (3)
  1. INLYTA [Suspect]
     Indication: RENAL CELL CARCINOMA
     Dosage: 5 MG, TWICE DAILY
     Route: 048
     Dates: start: 20130603
  2. INLYTA [Suspect]
     Dosage: 5 MG, DAILY
     Dates: end: 20130802
  3. INLYTA [Suspect]
     Dosage: 5 MG, DAILY
     Dates: start: 20130820

REACTIONS (3)
  - Oesophagitis [Recovered/Resolved]
  - Clostridium difficile infection [Recovered/Resolved]
  - Gastrointestinal haemorrhage [Recovered/Resolved]
